FAERS Safety Report 10692185 (Version 4)
Quarter: 2015Q3

REPORT INFORMATION
  Report Type: Spontaneous
  Country: NO (occurrence: NO)
  Receive Date: 20150106
  Receipt Date: 20150721
  Transmission Date: 20151125
  Serious: Yes (Death, Other)
  Sender: FDA-Public Use
  Company Number: NO-JNJFOC-20141219161

PATIENT
  Age: 16 Year
  Sex: Female

DRUGS (2)
  1. BENZATHINE PHENOXYMETHYL PENICILLIN [Concomitant]
     Active Substance: PENICILLIN V BENZATHINE
     Indication: STREPTOCOCCAL INFECTION
     Route: 048
     Dates: start: 201410, end: 201410
  2. CONCERTA [Suspect]
     Active Substance: METHYLPHENIDATE HYDROCHLORIDE
     Indication: ATTENTION DEFICIT/HYPERACTIVITY DISORDER
     Route: 048
     Dates: start: 2004

REACTIONS (2)
  - Death [Fatal]
  - Infectious mononucleosis [Unknown]

NARRATIVE: CASE EVENT DATE: 201410
